FAERS Safety Report 20814467 (Version 3)
Quarter: 2023Q1

REPORT INFORMATION
  Report Type: Spontaneous
  Country: US (occurrence: US)
  Receive Date: 20220511
  Receipt Date: 20230118
  Transmission Date: 20230418
  Serious: Yes (Hospitalization, Other)
  Sender: FDA-Public Use
  Company Number: US-BRISTOL-MYERS SQUIBB COMPANY-2022-030589

PATIENT
  Age: 78 Year
  Sex: Female

DRUGS (2)
  1. REVLIMID [Suspect]
     Active Substance: LENALIDOMIDE
     Indication: Product used for unknown indication
     Dosage: FREQUENCY DAILY FOR 3 WEEKS
     Route: 048
     Dates: start: 20200918
  2. REVLIMID [Suspect]
     Active Substance: LENALIDOMIDE
     Route: 048
     Dates: start: 202010, end: 202204

REACTIONS (3)
  - Back disorder [Unknown]
  - Impaired healing [Recovering/Resolving]
  - Neuropathy peripheral [Unknown]

NARRATIVE: CASE EVENT DATE: 20200918
